FAERS Safety Report 7076682-5 (Version None)
Quarter: 2010Q4

REPORT INFORMATION
  Report Type: 
  Country: None (occurrence: None)
  Receive Date: 20101101
  Receipt Date: 20101018
  Transmission Date: 20110411
  Serious: Yes (Hospitalization)
  Sender: FDA-Public Use
  Company Number: US-ELI_LILLY_AND_COMPANY-US201010004637

PATIENT
  Sex: Female

DRUGS (11)
  1. FORTEO [Suspect]
     Indication: OSTEOPOROSIS
     Dosage: 20 UG, DAILY (1/D)
     Dates: start: 20100601
  2. FORTEO [Suspect]
     Dosage: 20 UG, DAILY (1/D)
     Dates: start: 20100907, end: 20101004
  3. NEXIUM [Concomitant]
  4. EFFEXOR [Concomitant]
     Indication: DEPRESSION
  5. ASPIRIN [Concomitant]
  6. CALCIUM W/VITAMIN D NOS [Concomitant]
  7. MULTI-VITAMIN [Concomitant]
  8. ZETIA [Concomitant]
  9. ZOCOR [Concomitant]
  10. WARFARIN [Concomitant]
  11. TRAMADOL [Concomitant]
     Dosage: 1 D/F, AS NEEDED

REACTIONS (3)
  - CONTUSION [None]
  - HYPOAESTHESIA FACIAL [None]
  - SENSATION OF HEAVINESS [None]
